FAERS Safety Report 17024569 (Version 1)
Quarter: 2019Q4

REPORT INFORMATION
  Report Type: Spontaneous
  Country: IT (occurrence: IT)
  Receive Date: 20191113
  Receipt Date: 20191113
  Transmission Date: 20200122
  Serious: Yes (Hospitalization)
  Sender: FDA-Public Use
  Company Number: IT-TEVA-2019-IT-1136276

PATIENT
  Age: 86 Year
  Sex: Female

DRUGS (7)
  1. LOBIDIUR [Concomitant]
     Active Substance: HYDROCHLOROTHIAZIDE\NEBIVOLOL HYDROCHLORIDE
     Dosage: 5 MG/25 MG
     Route: 048
  2. DOBETIN 20 MICROGRAMMI/ML GOCCE ORALI, SOLUZIONE [Concomitant]
     Dosage: 20MCG/ML
     Route: 048
  3. CLOPIDOGREL [Suspect]
     Active Substance: CLOPIDOGREL BISULFATE
     Indication: THROMBOSIS PROPHYLAXIS
     Dosage: 1 DF
     Route: 048
     Dates: start: 20190101, end: 20190914
  4. TORVAST 40 MG COMPRESSE RIVESTITE CON FILM [Concomitant]
     Active Substance: ATORVASTATIN
     Route: 048
  5. PANTORC [Concomitant]
     Active Substance: PANTOPRAZOLE SODIUM
     Route: 048
  6. BINOCRIT [Concomitant]
     Active Substance: ERYTHROPOIETIN
     Route: 058
  7. FOLINA [Concomitant]
     Route: 048

REACTIONS (1)
  - Rectal haemorrhage [Recovering/Resolving]

NARRATIVE: CASE EVENT DATE: 20190914
